FAERS Safety Report 9901255 (Version 1)
Quarter: 2014Q1

REPORT INFORMATION
  Report Type: Spontaneous
  Country: GB (occurrence: GB)
  Receive Date: 20140217
  Receipt Date: 20140217
  Transmission Date: 20141002
  Serious: Yes (Other)
  Sender: FDA-Public Use
  Company Number: GB-TEVA-460626ISR

PATIENT
  Age: 47 Year
  Sex: Female
  Weight: 69.85 kg

DRUGS (4)
  1. LEVOTHYROXINE TEVA [Suspect]
     Indication: HYPOTHYROIDISM
     Route: 048
  2. PROPRANOLOL [Concomitant]
     Indication: DEPRESSION
     Dosage: 40-120MG, ONGOING
     Dates: start: 201310
  3. CITALOPRAM [Concomitant]
     Indication: DEPRESSION
     Dosage: 20 MILLIGRAM DAILY; ONGOING
     Dates: start: 201310
  4. CANDESARTAN [Concomitant]
     Indication: HYPERTENSION
     Dosage: ONGOING

REACTIONS (5)
  - Feeling abnormal [Recovering/Resolving]
  - Anxiety [Recovering/Resolving]
  - Panic attack [Recovering/Resolving]
  - Agitation [Recovering/Resolving]
  - Overdose [Unknown]
